FAERS Safety Report 8956239 (Version 1)
Quarter: 2012Q4

REPORT INFORMATION
  Report Type: 
  Country: JP (occurrence: JP)
  Receive Date: 20121210
  Receipt Date: 20121210
  Transmission Date: 20130627
  Serious: Yes (Hospitalization, Other)
  Sender: FDA-Public Use
  Company Number: PHHY2012JP112663

PATIENT
  Age: 56 Year
  Sex: Male

DRUGS (9)
  1. FTY 720 [Suspect]
     Indication: MULTIPLE SCLEROSIS
     Dosage: 0.5 mg, QD
     Route: 048
     Dates: start: 20120424, end: 20120820
  2. BETAFERON [Concomitant]
     Dosage: UNK UKN, QOD
     Route: 058
  3. CRESTOR [Concomitant]
     Dosage: 2.5 mg, QD
     Route: 048
  4. GASTER [Concomitant]
     Dosage: 20 mg, QD
     Route: 048
  5. BUP-4 [Concomitant]
     Dosage: 20 mg, QD
     Route: 048
  6. DEPAS [Concomitant]
     Dosage: 1 mg, QD
     Route: 048
  7. RIVOTRIL [Concomitant]
     Dosage: 1 mg, QD
     Route: 048
  8. DOGMATYL [Concomitant]
     Dosage: 50 mg, QD
     Route: 048
  9. MAGMITT [Concomitant]
     Dosage: 750 mg, QD
     Route: 048

REACTIONS (8)
  - Hepatic function abnormal [Recovered/Resolved]
  - Alanine aminotransferase increased [Unknown]
  - Aspartate aminotransferase increased [Unknown]
  - Gamma-glutamyltransferase increased [Unknown]
  - Blood bilirubin increased [Unknown]
  - Blood lactate dehydrogenase increased [Unknown]
  - White blood cell count abnormal [Unknown]
  - Lymphocyte count decreased [Unknown]
